FAERS Safety Report 7119728-8 (Version None)
Quarter: 2010Q4

REPORT INFORMATION
  Report Type: 
  Country: None (occurrence: None)
  Receive Date: 20101123
  Receipt Date: 20100520
  Transmission Date: 20110411
  Serious: No
  Sender: FDA-Public Use
  Company Number: US-BRISTOL-MYERS SQUIBB COMPANY-15037211

PATIENT
  Age: 67 Year
  Sex: Female
  Weight: 91 kg

DRUGS (5)
  1. ONGLYZA [Suspect]
     Indication: DIABETES MELLITUS
     Dosage: DOSE CHANGED 5MG(8K4307BA, EXP DATE:10/2010) 8K4303D, EXP DATE:10/2011 9D4707B (5 MG)
     Route: 048
  2. INSULIN [Concomitant]
  3. MULTI-VITAMIN [Concomitant]
  4. ASCORBIC ACID [Concomitant]
  5. VITAMIN D [Concomitant]

REACTIONS (3)
  - BLOOD GLUCOSE INCREASED [None]
  - TINNITUS [None]
  - UPPER RESPIRATORY TRACT INFECTION [None]
